FAERS Safety Report 17578971 (Version 1)
Quarter: 2020Q1

REPORT INFORMATION
  Report Type: Report from Study
  Country: US (occurrence: US)
  Receive Date: 20200325
  Receipt Date: 20200325
  Transmission Date: 20200409
  Serious: Yes (Hospitalization, Other)
  Sender: FDA-Public Use
  Company Number: US-BRISTOL-MYERS SQUIBB COMPANY-BMS-2020-024360

PATIENT
  Sex: Female
  Weight: 64.2 kg

DRUGS (14)
  1. LISINOPRIL AND HYDROCHLOROTHIAZIDE [Concomitant]
     Active Substance: HYDROCHLOROTHIAZIDE\LISINOPRIL
     Indication: HYPERTENSION
     Dosage: 20-12.5 MG TABLET TAKE 1 TABLET ONCE DAILY
     Route: 048
     Dates: start: 20190727
  2. NIVOLUMAB [Suspect]
     Active Substance: NIVOLUMAB
     Indication: UVEAL MELANOMA
     Dosage: 240 MILLIGRAM/KILOGRAM, Q2WK
     Route: 042
     Dates: start: 20191118, end: 20200305
  3. IPILIMUMAB [Suspect]
     Active Substance: IPILIMUMAB
     Indication: UVEAL MELANOMA
     Dosage: 112.2 MILLIGRAM, Q6WK
     Route: 042
     Dates: start: 20191118, end: 20200305
  4. B COMPLEX [VITAMIN B COMPLEX] [Concomitant]
     Indication: FATIGUE
     Dosage: UNK, QD
     Route: 048
     Dates: start: 20191118
  5. MIRTAZAPINE. [Concomitant]
     Active Substance: MIRTAZAPINE
     Indication: DEPRESSION
     Dosage: 7.5 MILLIGRAM, QPM
     Route: 048
     Dates: start: 20200311
  6. ACITRETIN. [Concomitant]
     Active Substance: ACITRETIN
     Indication: DRY SKIN
     Dosage: 10 MILLIGRAM, QD
     Route: 048
     Dates: start: 20200121
  7. ASPIRIN [ACETYLSALICYLIC ACID] [Concomitant]
     Active Substance: ASPIRIN
     Indication: PRODUCT USED FOR UNKNOWN INDICATION
     Dosage: 81 MILLIGRAM, QD
     Route: 048
     Dates: start: 20191118
  8. MAGNESIUM OXIDE. [Concomitant]
     Active Substance: MAGNESIUM OXIDE
     Indication: MAGNESIUM DEFICIENCY
     Dosage: 400 MG CAPSULE TAKE 1 CAPSULE ONCE DAILY
     Route: 048
     Dates: start: 20191118
  9. PREDNISONE. [Concomitant]
     Active Substance: PREDNISONE
     Indication: INFLAMMATION
     Dosage: 10 MILLIGRAM, QD
     Route: 048
     Dates: start: 20200222
  10. CLOBETASOL [Concomitant]
     Active Substance: CLOBETASOL
     Indication: DRY SKIN
     Dosage: APPLY TOPICALLY TO AFFECTED AREA, TWICE DAILY
     Route: 061
     Dates: start: 20200121
  11. TRIAMCINOLONE [Concomitant]
     Active Substance: TRIAMCINOLONE
     Indication: PRURITUS
     Dosage: 0.1% OINTMENT
     Route: 061
     Dates: start: 20200210
  12. CALCIUM CARBONATE/VITAMIN D3 [Concomitant]
     Active Substance: CALCIUM CARBONATE\CHOLECALCIFEROL
     Indication: CALCIUM DEFICIENCY
     Dosage: 1500 MG - 400 UNITS PER TABLET TAKE 1 TABLET QDAILY
     Route: 048
     Dates: start: 20191118
  13. TRAMADOL. [Concomitant]
     Active Substance: TRAMADOL
     Indication: PAIN
     Dosage: 50 MILLIGRAM, PRN
     Route: 048
     Dates: start: 20191119
  14. LIDOCAINE/PRILOCAINE [Concomitant]
     Active Substance: LIDOCAINE\PRILOCAINE
     Indication: PAIN
     Dosage: 2.5-2.5% CREAM APPLY TO PORT-A-CATH AREA 30-45 MIN PRIOR TO PORT ACCESS FOR PAIN
     Route: 065
     Dates: start: 20191119

REACTIONS (1)
  - Sepsis [Unknown]

NARRATIVE: CASE EVENT DATE: 20200315
